FAERS Safety Report 5162800-2 (Version None)
Quarter: 2006Q4

REPORT INFORMATION
  Report Type: 
  Country: None (occurrence: None)
  Receive Date: 20061121
  Receipt Date: 20061110
  Transmission Date: 20070319
  Serious: Yes (Other)
  Sender: FDA-Public Use
  Company Number: US-2006-024311

PATIENT
  Age: 35 Year
  Sex: Female
  Weight: 96.1 kg

DRUGS (2)
  1. MIRENA [Suspect]
     Indication: CONTRACEPTION
     Dosage: 20 UG/DAY, CONT, INTRA-UTERINE
     Route: 015
     Dates: start: 20060821, end: 20060821
  2. ZOLOFT [Concomitant]

REACTIONS (1)
  - IUD MIGRATION [None]
